FAERS Safety Report 9651529 (Version 1)
Quarter: 2013Q4

REPORT INFORMATION
  Report Type: Spontaneous
  Country: US (occurrence: US)
  Receive Date: 20131029
  Receipt Date: 20131029
  Transmission Date: 20140711
  Serious: No
  Sender: FDA-Public Use
  Company Number: US-ENDO PHARMACEUTICALS INC.-ISOS20120008

PATIENT
  Sex: Male

DRUGS (1)
  1. ISOSORBIDE MONONITRATE ER TABLETS 60MG [Suspect]
     Indication: PRODUCT USED FOR UNKNOWN INDICATION
     Route: 048

REACTIONS (2)
  - Medication residue present [Unknown]
  - Drug ineffective [Unknown]
